FAERS Safety Report 24707176 (Version 1)
Quarter: 2024Q4

REPORT INFORMATION
  Report Type: Spontaneous
  Country: US (occurrence: US)
  Receive Date: 20241206
  Receipt Date: 20241206
  Transmission Date: 20250114
  Serious: No
  Sender: CALLIDITAS THERAPEUTICS AB
  Company Number: US-Calliditas-2024CAL02738

PATIENT
  Age: 63 Year
  Sex: Male

DRUGS (1)
  1. TARPEYO [Suspect]
     Active Substance: BUDESONIDE
     Indication: Nephritic syndrome
     Dosage: TAKE 4 CAPSULES BY MOUTH ONCE DAILY.
     Route: 048

REACTIONS (3)
  - Skin papilloma [Unknown]
  - Constipation [Unknown]
  - Off label use [Unknown]
